FAERS Safety Report 15729303 (Version 1)
Quarter: 2018Q4

REPORT INFORMATION
  Report Type: Spontaneous
  Country: BE (occurrence: BE)
  Receive Date: 20181217
  Receipt Date: 20181217
  Transmission Date: 20190205
  Serious: Yes (Other)
  Sender: FDA-Public Use
  Company Number: BE-ASPEN-GLO2018BE012519

PATIENT
  Age: 12 Year
  Sex: Female

DRUGS (1)
  1. BUSULFAN. [Suspect]
     Active Substance: BUSULFAN
     Indication: MYELOID LEUKAEMIA
     Dosage: 16 MG/KG
     Route: 065

REACTIONS (1)
  - Premature menopause [Unknown]
